FAERS Safety Report 4440954-0 (Version None)
Quarter: 2004Q3

REPORT INFORMATION
  Report Type: 
  Country: None (occurrence: None)
  Receive Date: 20040728
  Receipt Date: 20040408
  Transmission Date: 20050211
  Serious: No
  Sender: FDA-Public Use
  Company Number: USA040464515

PATIENT
  Age: 40 Year
  Sex: Female

DRUGS (14)
  1. STRATTERA [Suspect]
     Indication: ATTENTION DEFICIT/HYPERACTIVITY DISORDER
     Dosage: 60 MG IN THE EVENING
     Dates: start: 20040322
  2. ZYPEXA (OLANZAPINE) [Concomitant]
  3. SEROQUEL [Concomitant]
  4. DEPAKOTE [Concomitant]
  5. LIPITOR [Concomitant]
  6. SINGULAIR [Concomitant]
  7. K-DUR 10 [Concomitant]
  8. LEVOXINE (LEVOTHYROXINE SODIUM) [Concomitant]
  9. RANITIDINE [Concomitant]
  10. DETROL (TOLTERIDONE L-TARTRATE) [Concomitant]
  11. FLONASE [Concomitant]
  12. PRAVACHOL [Concomitant]
  13. PROVENTIL [Concomitant]
  14. IBUPROFEN [Concomitant]

REACTIONS (2)
  - SOMNOLENCE [None]
  - TINNITUS [None]
